FAERS Safety Report 5851556-3 (Version None)
Quarter: 2008Q3

REPORT INFORMATION
  Report Type: 
  Country: None (occurrence: None)
  Receive Date: 20080820
  Receipt Date: 20080813
  Transmission Date: 20090109
  Serious: Yes (Hospitalization)
  Sender: FDA-Public Use
  Company Number: GB-BAXTER-2008BH008598

PATIENT
  Age: 7 Year
  Sex: Female

DRUGS (5)
  1. IMMUNE GLOBULIN INTRAVENOUS (HUMAN) [Suspect]
     Indication: EVANS SYNDROME
     Dosage: DOSE UNIT:UNKNOWN
     Route: 042
  2. CYCLOSPORINE [Suspect]
     Indication: EVANS SYNDROME
     Dosage: DOSE UNIT:UNKNOWN
     Route: 065
  3. MYCOPHENOLATE MOFETIL [Suspect]
     Indication: EVANS SYNDROME
     Dosage: DOSE UNIT:UNKNOWN
     Route: 065
  4. PREDNISOLONE [Suspect]
     Indication: EVANS SYNDROME
     Dosage: DOSE UNIT:UNKNOWN
     Route: 065
  5. RITUXAN [Suspect]
     Indication: EVANS SYNDROME
     Dosage: DOSE UNIT:UNKNOWN
     Route: 042

REACTIONS (2)
  - LYMPHOPROLIFERATIVE DISORDER [None]
  - PULMONARY HYPERTENSION [None]
